FAERS Safety Report 15504819 (Version 1)
Quarter: 2018Q4

REPORT INFORMATION
  Report Type: Spontaneous
  Country: US (occurrence: US)
  Receive Date: 20181016
  Receipt Date: 20181016
  Transmission Date: 20190205
  Serious: No
  Sender: FDA-Public Use
  Company Number: US-SA-2018SA282055

PATIENT
  Age: 58 Year
  Sex: Female

DRUGS (1)
  1. APIDRA [Suspect]
     Active Substance: INSULIN GLULISINE
     Indication: TYPE 2 DIABETES MELLITUS
     Dosage: 40 IU, TID

REACTIONS (3)
  - Product dose omission [Unknown]
  - Visual impairment [Not Recovered/Not Resolved]
  - Device issue [Unknown]
